FAERS Safety Report 10437716 (Version 2)
Quarter: 2014Q3

REPORT INFORMATION
  Report Type: Spontaneous
  Country: VE (occurrence: None)
  Receive Date: 20140904
  Receipt Date: 20140919
  Transmission Date: 20150326
  Serious: Yes (Disabling, Other)
  Sender: FDA-Public Use
  Company Number: VAL_03345_2014

PATIENT
  Sex: Male

DRUGS (8)
  1. ZYPREXA [Concomitant]
     Active Substance: OLANZAPINE
  2. PARLODEL [Suspect]
     Active Substance: BROMOCRIPTINE MESYLATE
     Indication: PITUITARY TUMOUR
     Dosage: 2.5 MG [DAILY, SUSPENDED VARIOUS TIMES] ORAL
     Route: 048
     Dates: start: 2013, end: 201407
  3. PARLODEL [Suspect]
     Active Substance: BROMOCRIPTINE MESYLATE
     Indication: MENTAL DISORDER
     Dosage: 2.5 MG [DAILY, SUSPENDED VARIOUS TIMES] ORAL
     Route: 048
     Dates: start: 2013, end: 201407
  4. PARLODEL [Suspect]
     Active Substance: BROMOCRIPTINE MESYLATE
     Indication: OFF LABEL USE
     Dosage: 2.5 MG [DAILY, SUSPENDED VARIOUS TIMES] ORAL
     Route: 048
     Dates: start: 2013, end: 201407
  5. TRILEPTAL [Suspect]
     Active Substance: OXCARBAZEPINE
     Indication: MENTAL DISORDER
     Route: 048
     Dates: start: 2014
  6. TRILEPTAL [Suspect]
     Active Substance: OXCARBAZEPINE
     Indication: OFF LABEL USE
     Route: 048
     Dates: start: 2014
  7. EUTIROX [Concomitant]
     Active Substance: LEVOTHYROXINE SODIUM
  8. TRILEPTAL [Suspect]
     Active Substance: OXCARBAZEPINE
     Indication: AGGRESSION
     Route: 048
     Dates: start: 2014

REACTIONS (9)
  - Mental disorder [None]
  - Weight decreased [None]
  - Impaired self-care [None]
  - Tachycardia [None]
  - Malaise [None]
  - Blindness [None]
  - Incorrect route of drug administration [None]
  - Asthenia [None]
  - Pituitary tumour recurrent [None]
